FAERS Safety Report 18053945 (Version 1)
Quarter: 2020Q3

REPORT INFORMATION
  Report Type: Spontaneous
  Country: US (occurrence: US)
  Receive Date: 20200722
  Receipt Date: 20200722
  Transmission Date: 20201103
  Serious: No
  Sender: FDA-Public Use
  Company Number: US-PFIZER INC-2020275329

PATIENT
  Age: 17 Year
  Sex: Male
  Weight: 52.25 kg

DRUGS (1)
  1. VFEND [Suspect]
     Active Substance: VORICONAZOLE
     Indication: TRICHOSPORON INFECTION
     Dosage: 200 MG (4 MG/KG), TWICE DAILY (EVERY 12 HOURS INFUSING IT OVER ONE?AND?A?HALF HOURS)
     Route: 041
     Dates: start: 202007

REACTIONS (2)
  - Drug ineffective for unapproved indication [Unknown]
  - Off label use [Unknown]

NARRATIVE: CASE EVENT DATE: 202007
